FAERS Safety Report 6805603-2 (Version None)
Quarter: 2010Q2

REPORT INFORMATION
  Report Type: 
  Country: None (occurrence: None)
  Receive Date: 20100628
  Receipt Date: 20071228
  Transmission Date: 20101027
  Serious: No
  Sender: FDA-Public Use
  Company Number: US-PFIZER INC-2008001003

PATIENT
  Sex: Male

DRUGS (2)
  1. GEODON [Suspect]
     Indication: MANIA
     Route: 048
  2. GEODON [Suspect]
     Indication: MANIA
     Route: 030

REACTIONS (1)
  - TORTICOLLIS [None]
